FAERS Safety Report 7967237-6 (Version None)
Quarter: 2011Q4

REPORT INFORMATION
  Report Type: 
  Country: None (occurrence: None)
  Receive Date: 20111209
  Receipt Date: 20111202
  Transmission Date: 20120403
  Serious: Yes (Hospitalization)
  Sender: FDA-Public Use
  Company Number: DE-BRISTOL-MYERS SQUIBB COMPANY-16244865

PATIENT
  Age: 56 Year
  Sex: Male
  Weight: 72 kg

DRUGS (2)
  1. INNOHEP [Suspect]
     Indication: DEEP VEIN THROMBOSIS
     Dosage: 1DF=10000. UNIT NOT SPECIFIED
     Route: 058
     Dates: start: 20111107
  2. YERVOY [Suspect]
     Indication: MALIGNANT MELANOMA
     Dosage: 3 INFUSION. 20SEP11,11OCT11,01NOV11.
     Route: 042
     Dates: start: 20110920

REACTIONS (2)
  - COLITIS ULCERATIVE [None]
  - RECTAL HAEMORRHAGE [None]
